FAERS Safety Report 6584545-4 (Version None)
Quarter: 2010Q1

REPORT INFORMATION
  Report Type: 
  Country: None (occurrence: None)
  Receive Date: 20100213
  Receipt Date: 20100213
  Transmission Date: 20100710
  Serious: No
  Sender: FDA-Public Use
  Company Number: None

PATIENT
  Sex: Female
  Weight: 82.5 kg

DRUGS (8)
  1. CLOFARABINE [Suspect]
     Indication: ACUTE MYELOID LEUKAEMIA
     Dosage: 95 9 24? IV PIGGYBACK
     Route: 042
     Dates: start: 20100123, end: 20100127
  2. CYTARABINE [Suspect]
     Indication: ACUTE MYELOID LEUKAEMIA
     Dosage: 1870MG 9 24? IV PIGGYBACK
     Route: 042
     Dates: start: 20100123, end: 20100127
  3. LORAZEPAM [Concomitant]
  4. NORCO [Concomitant]
  5. DECADRON [Concomitant]
  6. KYTRIL [Concomitant]
  7. MORPHINE [Concomitant]
  8. PHENERGAN HCL [Concomitant]

REACTIONS (2)
  - NO THERAPEUTIC RESPONSE [None]
  - PALMAR-PLANTAR ERYTHRODYSAESTHESIA SYNDROME [None]
